FAERS Safety Report 5179046-4 (Version None)
Quarter: 2006Q4

REPORT INFORMATION
  Report Type: 
  Country: None (occurrence: None)
  Receive Date: 20061214
  Receipt Date: 20061214
  Transmission Date: 20070319
  Serious: Yes (Other)
  Sender: FDA-Public Use
  Company Number: None

PATIENT
  Sex: Female
  Weight: 78.4723 kg

DRUGS (2)
  1. ULTRASE MT20 [Suspect]
     Indication: ABDOMINAL PAIN UPPER
     Dosage: 2 CAPS 3 TIMES A DAY PO
     Route: 048
     Dates: start: 20050220, end: 20051101
  2. CREON [Suspect]
     Indication: ABDOMINAL PAIN UPPER
     Dosage: 1 CAP  1 A DAY PO
     Route: 048
     Dates: start: 20060301, end: 20060301

REACTIONS (5)
  - CARDIAC STRESS TEST ABNORMAL [None]
  - CHEST PAIN [None]
  - CONDITION AGGRAVATED [None]
  - ELECTROCARDIOGRAM ST SEGMENT ABNORMAL [None]
  - PANCREATIC DISORDER [None]
